FAERS Safety Report 13796258 (Version 1)
Quarter: 2017Q3

REPORT INFORMATION
  Report Type: Spontaneous
  Country: US (occurrence: US)
  Receive Date: 20170726
  Receipt Date: 20170726
  Transmission Date: 20171127
  Serious: Yes (Other)
  Sender: FDA-Public Use
  Company Number: US-JAZZ-2017-US-009124

PATIENT
  Sex: Female

DRUGS (13)
  1. TUMS EX [Concomitant]
     Active Substance: CALCIUM CARBONATE
  2. XYREM [Suspect]
     Active Substance: SODIUM OXYBATE
     Indication: CATAPLEXY
     Dosage: 2.5G, BID
     Route: 048
     Dates: start: 201010, end: 201611
  3. XYREM [Suspect]
     Active Substance: SODIUM OXYBATE
     Dosage: 4 UNK, UNK
     Route: 048
  4. BIOTIN [Concomitant]
     Active Substance: BIOTIN
  5. TYLENOL [Concomitant]
     Active Substance: ACETAMINOPHEN
  6. IBUPROFEN. [Concomitant]
     Active Substance: IBUPROFEN
  7. RITALIN [Concomitant]
     Active Substance: METHYLPHENIDATE HYDROCHLORIDE
  8. VITAMIN D3 [Concomitant]
     Active Substance: CHOLECALCIFEROL
  9. ALEVE [Concomitant]
     Active Substance: NAPROXEN SODIUM
  10. POTASSIUM CL [Concomitant]
     Active Substance: POTASSIUM CHLORIDE
  11. VITAMIN B12 [Concomitant]
     Active Substance: CYANOCOBALAMIN
  12. XYREM [Suspect]
     Active Substance: SODIUM OXYBATE
     Indication: NARCOLEPSY
     Dosage: 3G, BID
     Route: 048
     Dates: start: 201611
  13. CLARITIN [Concomitant]
     Active Substance: LORATADINE

REACTIONS (11)
  - Oropharyngeal pain [Not Recovered/Not Resolved]
  - Temporomandibular joint syndrome [Not Recovered/Not Resolved]
  - Vitamin B12 decreased [Recovered/Resolved]
  - Ovarian cystectomy [Not Recovered/Not Resolved]
  - Headache [Not Recovered/Not Resolved]
  - Nasopharyngitis [Not Recovered/Not Resolved]
  - Ear congestion [Not Recovered/Not Resolved]
  - Sinus disorder [Not Recovered/Not Resolved]
  - Gastric disorder [Not Recovered/Not Resolved]
  - Respiratory tract congestion [Not Recovered/Not Resolved]
  - Feeling hot [Not Recovered/Not Resolved]
